FAERS Safety Report 4775139-1 (Version None)
Quarter: 2005Q3

REPORT INFORMATION
  Report Type: 
  Country: None (occurrence: None)
  Receive Date: 20050920
  Receipt Date: 20050909
  Transmission Date: 20060218
  Serious: Yes (Other)
  Sender: FDA-Public Use
  Company Number: 2005104068

PATIENT
  Age: 31 Year
  Sex: Female
  Weight: 53.5244 kg

DRUGS (4)
  1. DETROL LA [Suspect]
     Indication: BLADDER SPASM
     Dosage: 4 MG (4 MG, 1 IN 1 D)
     Dates: start: 20040801, end: 20050301
  2. TOBRADEX [Concomitant]
  3. ESTROGENS, COMBINATIONS WITH OTHER DRUGS (ESTROGENS, COMBINATIONS WITH [Concomitant]
  4. MULTIVITAMIN [Concomitant]

REACTIONS (5)
  - ANGLE CLOSURE GLAUCOMA [None]
  - BLADDER SPASM [None]
  - CONDITION AGGRAVATED [None]
  - CONJUNCTIVITIS INFECTIVE [None]
  - DRUG INEFFECTIVE [None]
